FAERS Safety Report 9510469 (Version 2)
Quarter: 2013Q4

REPORT INFORMATION
  Report Type: Spontaneous
  Country: CH (occurrence: CH)
  Receive Date: 20130909
  Receipt Date: 20131001
  Transmission Date: 20140711
  Serious: Yes (Hospitalization)
  Sender: FDA-Public Use
  Company Number: CH-TEVA-428982ISR

PATIENT
  Age: 83 Year
  Sex: Female

DRUGS (12)
  1. COMILORID-MEPHA [Suspect]
     Indication: HYPERTENSIVE HEART DISEASE
     Dosage: 1 DOSAGE FORMS DAILY; DOSING REGIMEN: 1-0-0-0
     Route: 048
     Dates: end: 20130726
  2. REMERON [Interacting]
     Indication: DEPRESSION
     Dosage: 45 MILLIGRAM DAILY;
     Route: 048
     Dates: start: 201305, end: 20130726
  3. CIPRALEX [Interacting]
     Indication: DEPRESSION
     Dosage: 20 MILLIGRAM DAILY;
     Route: 048
     Dates: start: 201305, end: 20130726
  4. PANTOZOL [Concomitant]
     Route: 065
  5. PRADIF [Concomitant]
     Dosage: PRADIF WAS DISCONTINUED DURING THE HOSPITALIZATION
     Route: 065
  6. CIPROXIN [Concomitant]
     Route: 065
  7. LYRICA [Concomitant]
     Route: 065
  8. ASPIRIN [Concomitant]
     Route: 065
  9. IMOVANE [Concomitant]
     Route: 065
  10. CALCIUM + D3 [Concomitant]
     Route: 065
  11. PASPERTIN [Concomitant]
     Route: 065
  12. PERENTEROL [Concomitant]
     Route: 065

REACTIONS (2)
  - Hyponatraemia [Recovered/Resolved]
  - Drug interaction [Unknown]
